FAERS Safety Report 7563708-5 (Version None)
Quarter: 2011Q2

REPORT INFORMATION
  Report Type: 
  Country: None (occurrence: None)
  Receive Date: 20110622
  Receipt Date: 20110614
  Transmission Date: 20111010
  Serious: Yes (Other)
  Sender: FDA-Public Use
  Company Number: GXBR2011US02737

PATIENT

DRUGS (1)
  1. CYCLOSPORINE [Suspect]
     Dosage: UNK MG, UNK

REACTIONS (1)
  - ENCEPHALITIS [None]
